FAERS Safety Report 6104795-0 (Version None)
Quarter: 2009Q1

REPORT INFORMATION
  Report Type: 
  Country: None (occurrence: None)
  Receive Date: 20090306
  Receipt Date: 20090226
  Transmission Date: 20090719
  Serious: Yes (Other)
  Sender: FDA-Public Use
  Company Number: PHHY2008SE27725

PATIENT
  Sex: Male

DRUGS (12)
  1. TEGRETOL [Suspect]
     Indication: CONVULSION
     Dosage: 1 DF, TID
     Route: 048
  2. TEGRETOL [Suspect]
     Dosage: 2.5 DF
     Route: 048
     Dates: start: 20030101
  3. ESUCOS [Concomitant]
     Indication: FORMICATION
     Dosage: UNK
     Dates: end: 20000101
  4. NEURONTIN [Concomitant]
     Indication: PAIN
     Dosage: 100 MG X2
  5. MYSOLINE [Concomitant]
     Dosage: UNK
  6. DIAZEPAM [Concomitant]
     Dosage: UNK
     Dates: start: 19670101
  7. ALVEDON [Concomitant]
     Dosage: 500 MG, 8 PER DAY
  8. ALVEDON [Concomitant]
     Dosage: 500 MG, 1 TO 2 PER DAY
  9. PRIMIDONE [Concomitant]
     Dosage: UNK
  10. PULMICORT-100 [Concomitant]
     Dosage: UNK
  11. RHINOCORT (BECLOMETASONE DIPROPIONATE) [Concomitant]
     Dosage: UNK
  12. BEHEPAN [Concomitant]

REACTIONS (13)
  - FATIGUE [None]
  - HEADACHE [None]
  - HYPERHIDROSIS [None]
  - LUNG DISORDER [None]
  - MUSCULAR WEAKNESS [None]
  - MYALGIA [None]
  - OSTEOARTHRITIS [None]
  - PALPITATIONS [None]
  - POLYNEUROPATHY [None]
  - SENSORY DISTURBANCE [None]
  - TINNITUS [None]
  - URINARY RETENTION [None]
  - WEIGHT DECREASED [None]
